FAERS Safety Report 12410948 (Version 1)
Quarter: 2016Q2

REPORT INFORMATION
  Report Type: Spontaneous
  Country: US (occurrence: None)
  Receive Date: 20160526
  Receipt Date: 20160526
  Transmission Date: 20160815
  Serious: Yes (Other)
  Sender: FDA-Public Use
  Company Number: None

PATIENT
  Age: 62 Year
  Sex: Male
  Weight: 72.58 kg

DRUGS (7)
  1. VITAMIN C [Concomitant]
     Active Substance: ASCORBIC ACID
  2. PEPCID [Concomitant]
     Active Substance: FAMOTIDINE
  3. HARVONI [Suspect]
     Active Substance: LEDIPASVIR\SOFOSBUVIR
     Indication: HEPATITIS C
     Dosage: 90MG-400MG QD PO
     Route: 048
     Dates: start: 20160317, end: 20160512
  4. PRILOSEC [Concomitant]
     Active Substance: OMEPRAZOLE MAGNESIUM
  5. AMBIEN [Concomitant]
     Active Substance: ZOLPIDEM TARTRATE
  6. LEVSIN/SL [Concomitant]
  7. GINSENG [Concomitant]
     Active Substance: ASIAN GINSENG

REACTIONS (1)
  - Low density lipoprotein increased [None]

NARRATIVE: CASE EVENT DATE: 20160501
